FAERS Safety Report 17292132 (Version 1)
Quarter: 2020Q1

REPORT INFORMATION
  Report Type: Spontaneous
  Country: DE (occurrence: DE)
  Receive Date: 20200121
  Receipt Date: 20200121
  Transmission Date: 20200409
  Serious: Yes (Hospitalization)
  Sender: FDA-Public Use
  Company Number: DE-BAYER-2019-223844

PATIENT
  Age: 77 Year
  Sex: Female
  Weight: 64.5 kg

DRUGS (5)
  1. IOPROMIDE. [Suspect]
     Active Substance: IOPROMIDE
     Dosage: NK MG/ML, ACCORDING TO PLAN, INJECTION-/INFUSION SOLUTION
     Route: 042
  2. CANDESARTAN. [Concomitant]
     Active Substance: CANDESARTAN
     Dosage: 16 MG, 1-0-0-0, TABLETTEN
     Route: 048
  3. VIVINOX SLEEP [Concomitant]
     Active Substance: DIPHENHYDRAMINE HYDROCHLORIDE
     Dosage: 25 MG, BEI BEDARF, DRAGEES
     Route: 048
  4. BALDRIANWURZEL [Concomitant]
     Dosage: 450 MG, BEI BEDARF, TABLETTEN
     Route: 048
  5. MAGNESIUM [Concomitant]
     Active Substance: MAGNESIUM
     Dosage: 400 MG, 1-0-0-0, TABLETTEN
     Route: 048

REACTIONS (3)
  - Face oedema [Unknown]
  - Rash [Unknown]
  - Flushing [Unknown]
